FAERS Safety Report 7242155-X (Version None)
Quarter: 2011Q1

REPORT INFORMATION
  Report Type: 
  Country: None (occurrence: None)
  Receive Date: 20110124
  Receipt Date: 20110117
  Transmission Date: 20110831
  Serious: Yes (Other)
  Sender: FDA-Public Use
  Company Number: US-US-EMD SERONO, INC.-7037073

PATIENT
  Sex: Female

DRUGS (3)
  1. UNSPECIFIED ANXIETY MEDICATION [Concomitant]
     Indication: ANXIETY
  2. IBUPROFEN [Concomitant]
  3. REBIF [Suspect]
     Indication: PRODUCT USED FOR UNKNOWN INDICATION
     Route: 058
     Dates: start: 20101105, end: 20110101

REACTIONS (6)
  - PNEUMONIA [None]
  - INJECTION SITE ERYTHEMA [None]
  - BRONCHITIS [None]
  - GASTROENTERITIS VIRAL [None]
  - ARTHRALGIA [None]
  - MIGRAINE [None]
